FAERS Safety Report 6628767-2 (Version None)
Quarter: 2010Q1

REPORT INFORMATION
  Report Type: 
  Country: None (occurrence: None)
  Receive Date: 20100311
  Receipt Date: 20100310
  Transmission Date: 20100710
  Serious: Yes (Other)
  Sender: FDA-Public Use
  Company Number: CHPA2010NZ04680

PATIENT
  Age: 73 Year
  Sex: Male

DRUGS (1)
  1. OTRIVIN [Suspect]
     Indication: NASAL DECONGESTION THERAPY
     Dosage: UNK, QHS
     Route: 045
     Dates: start: 19620101

REACTIONS (5)
  - CORONARY ARTERY OCCLUSION [None]
  - HYPERTENSION [None]
  - INTENTIONAL DRUG MISUSE [None]
  - MYOCARDIAL INFARCTION [None]
  - STENT PLACEMENT [None]
